FAERS Safety Report 9552870 (Version 1)
Quarter: 2013Q3

REPORT INFORMATION
  Report Type: Spontaneous
  Country: US (occurrence: None)
  Receive Date: 20130724
  Receipt Date: 20130724
  Transmission Date: 20140515
  Serious: No
  Sender: FDA-Public Use
  Company Number: PHHY2013US034790

PATIENT
  Age: 51 Year
  Sex: Male
  Weight: 108.8 kg

DRUGS (9)
  1. GILENYA [Suspect]
     Indication: MULTIPLE SCLEROSIS
     Route: 048
  2. AMPYRA (FAMPRIDINE) TABLET, 10MG [Concomitant]
  3. FLOMAX/TAMULOSIN HYDROCHORIDE [Concomitant]
  4. GABAPENTIN (GABAPENTIN) [Concomitant]
  5. IBUPROFEN (IBUPROFEN) [Concomitant]
  6. ENLAPRIL (ENLAPRIL) [Concomitant]
  7. SIMVASTATIN (SIMVASTATIN) [Concomitant]
  8. POTASSIUM (POTASSUM)TABLET 25MEQ [Concomitant]
  9. FUROSEMIDE (FUROSEMIDE)TABLET [Concomitant]

REACTIONS (2)
  - Insomnia [None]
  - Headache [None]
